FAERS Safety Report 9691543 (Version 2)
Quarter: 2013Q4

REPORT INFORMATION
  Report Type: Report from Study
  Country: US (occurrence: US)
  Receive Date: 20131115
  Receipt Date: 20131115
  Transmission Date: 20140711
  Serious: Yes (Other)
  Sender: FDA-Public Use
  Company Number: US-ABBVIE-13P-163-1166151-00

PATIENT
  Age: 42 Year
  Sex: Male
  Weight: 102.15 kg

DRUGS (3)
  1. HUMIRA [Suspect]
     Indication: PSORIASIS
     Dates: start: 201302, end: 201302
  2. HUMIRA [Suspect]
     Dates: start: 201302, end: 201309
  3. TRAZODONE [Concomitant]
     Indication: INSOMNIA

REACTIONS (4)
  - Meniscus injury [Recovered/Resolved]
  - Accident at work [Recovered/Resolved]
  - Pain [Recovered/Resolved]
  - Procedural pain [Not Recovered/Not Resolved]
